FAERS Safety Report 9912592 (Version 2)
Quarter: 2014Q1

REPORT INFORMATION
  Report Type: Spontaneous
  Country: JP (occurrence: None)
  Receive Date: 20140214
  Receipt Date: 20140306
  Transmission Date: 20141002
  Serious: Yes (Death, Hospitalization)
  Sender: FDA-Public Use
  Company Number: 2014P1001172

PATIENT
  Age: 67 Year
  Sex: Male

DRUGS (5)
  1. ZOLEDRONIC ACID INJECTION [Suspect]
     Indication: METASTASES TO BONE
  2. DEXAMETHASONE [Concomitant]
     Route: 048
  3. ESTRAMUSTINE [Concomitant]
  4. UNSPECIFIED LH-RH ANALOG [Concomitant]
  5. CYCLOPHOSPHAMIDE [Concomitant]

REACTIONS (11)
  - Osteonecrosis of jaw [None]
  - Pharyngeal abscess [None]
  - Dyspnoea [None]
  - Cellulitis [None]
  - Gas gangrene [None]
  - Metastases to liver [None]
  - Hepatic failure [None]
  - Mediastinal abscess [None]
  - Neutropenia [None]
  - Renal failure acute [None]
  - Infection [None]
